FAERS Safety Report 12630042 (Version 3)
Quarter: 2016Q4

REPORT INFORMATION
  Report Type: Spontaneous
  Country: US (occurrence: US)
  Receive Date: 20160808
  Receipt Date: 20161028
  Transmission Date: 20170207
  Serious: Yes (Hospitalization, Other)
  Sender: FDA-Public Use
  Company Number: US-WEST-WARD PHARMACEUTICALS CORP.-US-H14001-16-01452

PATIENT
  Age: 9 Year
  Sex: Female
  Weight: 22.7 kg

DRUGS (6)
  1. CBD OIL-PALMETTO HARMONY [Concomitant]
     Indication: BRAIN NEOPLASM
     Route: 065
  2. FULL CANNABIS OIL [Concomitant]
     Indication: PAIN
     Route: 065
  3. VITAMIN C [Concomitant]
     Active Substance: ASCORBIC ACID
     Indication: PRODUCT USED FOR UNKNOWN INDICATION
     Route: 041
  4. FULL CANNABIS OIL [Concomitant]
     Indication: DECREASED APPETITE
  5. SUPPLEMENTS WITH MINERALS [Concomitant]
     Indication: NUTRITIONAL SUPPLEMENTATION
     Route: 048
  6. DEXAMETHASONE. [Suspect]
     Active Substance: DEXAMETHASONE
     Indication: TENSION HEADACHE
     Route: 048
     Dates: start: 20160725, end: 20160725

REACTIONS (5)
  - Urinary retention [Not Recovered/Not Resolved]
  - Catheter site hypoaesthesia [Unknown]
  - Burning sensation [Recovered/Resolved]
  - Off label use [Recovered/Resolved]
  - Retinoblastoma [Fatal]

NARRATIVE: CASE EVENT DATE: 2016
